FAERS Safety Report 8197039-X (Version None)
Quarter: 2012Q1

REPORT INFORMATION
  Report Type: 
  Country: None (occurrence: None)
  Receive Date: 20120309
  Receipt Date: 20120228
  Transmission Date: 20120608
  Serious: Yes (Hospitalization)
  Sender: FDA-Public Use
  Company Number: CH-ELI_LILLY_AND_COMPANY-CH201202004685

PATIENT
  Age: 86 Year
  Sex: Female

DRUGS (1)
  1. FORTEO [Suspect]
     Indication: OSTEOPOROSIS
     Dosage: 20 UG, QD
     Route: 058
     Dates: start: 20120206

REACTIONS (6)
  - GAIT DISTURBANCE [None]
  - PAIN [None]
  - ASTHENIA [None]
  - MALAISE [None]
  - PAIN IN EXTREMITY [None]
  - SKIN ULCER [None]
